FAERS Safety Report 10229823 (Version 1)
Quarter: 2014Q2

REPORT INFORMATION
  Report Type: Spontaneous
  Country: US (occurrence: US)
  Receive Date: 20140611
  Receipt Date: 20140611
  Transmission Date: 20141212
  Serious: No
  Sender: FDA-Public Use
  Company Number: US-MYLANLABS-2014S1004322

PATIENT
  Sex: Female

DRUGS (2)
  1. CLOPIDOGREL [Suspect]
  2. CLOPIDOGREL [Suspect]

REACTIONS (1)
  - Weight increased [Not Recovered/Not Resolved]
